FAERS Safety Report 8816045 (Version 1)
Quarter: 2012Q4

REPORT INFORMATION
  Report Type: 
  Country: CZ (occurrence: CZ)
  Receive Date: 20120928
  Receipt Date: 20120928
  Transmission Date: 20130627
  Serious: Yes (Other)
  Sender: FDA-Public Use
  Company Number: CZ-PFIZER INC-2012234254

PATIENT
  Sex: Female

DRUGS (5)
  1. ZOLOFT [Suspect]
     Dosage: 50 mg daily
  2. ZOLOFT [Interacting]
     Dosage: 100 mg, daily
  3. APO-IBUPROFEN [Interacting]
     Indication: PAIN IN EXTREMITY
     Dosage: UNK
  4. REQUIP [Concomitant]
     Dosage: 16mg in the morning and 12mg at noon
  5. MADOPAR [Concomitant]
     Dosage: each morning 1 tablet and during the day as needed, about 4 tablets

REACTIONS (6)
  - Drug interaction [Recovered/Resolved]
  - Presyncope [Recovered/Resolved]
  - Sensation of heaviness [Recovered/Resolved]
  - Tremor [Recovered/Resolved]
  - Heart rate increased [Recovered/Resolved]
  - Asthenia [Recovered/Resolved]
